FAERS Safety Report 8899202 (Version 4)
Quarter: 2013Q1

REPORT INFORMATION
  Report Type: Report from Study
  Country: JP (occurrence: JP)
  Receive Date: 20121109
  Receipt Date: 20130125
  Transmission Date: 20140127
  Serious: Yes (Hospitalization)
  Sender: FDA-Public Use
  Company Number: JP-UCBSA-070355

PATIENT
  Age: 71 Year
  Sex: Female
  Weight: 52.5 kg

DRUGS (25)
  1. CERTOLIZUMAB PEGOL [Suspect]
     Indication: RHEUMATOID ARTHRITIS
     Route: 058
     Dates: start: 20110527
  2. CERTOLIZUMAB PEGOL [Suspect]
     Indication: RHEUMATOID ARTHRITIS
     Route: 058
     Dates: start: 20100430
  3. METHOTREXATE [Concomitant]
     Indication: RHEUMATOID ARTHRITIS
     Route: 048
     Dates: start: 20120404
  4. PREDNISOLONE [Concomitant]
     Indication: RHEUMATOID ARTHRITIS
     Route: 048
     Dates: start: 20090512
  5. LOXOPROFEN SODIUM HYDRATE [Concomitant]
     Indication: RHEUMATOID ARTHRITIS
     Dosage: AS NEEDED
     Route: 062
     Dates: start: 20120402
  6. LOXOPROFEN SODIUM HYDRATE [Concomitant]
     Indication: SPINAL OSTEOARTHRITIS
     Dosage: AS NEEDED
     Route: 062
     Dates: start: 20120402
  7. LOXOPROFEN SODIUM HYDRATE [Concomitant]
     Indication: SPINAL COMPRESSION FRACTURE
     Dosage: AS NEEDED
     Route: 062
     Dates: start: 20120402
  8. ALFACALCIDOL [Concomitant]
     Indication: OSTEOPOROSIS
     Route: 048
     Dates: start: 20080312
  9. ATENOLOL [Concomitant]
     Indication: HYPERTENSION
     Route: 048
     Dates: start: 2002
  10. ASPIRIN DIALUMINATE [Concomitant]
     Indication: CEREBROVASCULAR DISORDER
     Route: 048
     Dates: start: 2002
  11. ATORVASTATIN CALCIUM HYDRATE [Concomitant]
     Indication: HYPERCHOLESTEROLAEMIA
     Route: 048
     Dates: start: 2002
  12. TORASEMIDE [Concomitant]
     Indication: OEDEMA PERIPHERAL
     Route: 048
     Dates: start: 2002
  13. LANSOPRAZOLE [Concomitant]
     Indication: GASTROOESOPHAGEAL REFLUX DISEASE
     Route: 048
     Dates: start: 2002
  14. TOCOPHEROL NICOTINATE [Concomitant]
     Indication: HYPERCHOLESTEROLAEMIA
     Route: 048
     Dates: start: 2002
  15. PROPANTHELINE BROMIDE CHLOROPHYLL COMBINED DRUG [Concomitant]
     Indication: GASTRITIS PROPHYLAXIS
     Route: 048
     Dates: start: 2002
  16. PROPANTHELINE BROMIDE CHLOROPHYLL COMBINED DRUG [Concomitant]
     Indication: GASTRITIS PROPHYLAXIS
     Route: 048
     Dates: start: 2002
  17. MAGNESIUM OXIDE [Concomitant]
     Indication: GASTRITIS PROPHYLAXIS
     Route: 048
     Dates: start: 2002
  18. SODIUM BICARBONATE [Concomitant]
     Indication: GASTRITIS PROPHYLAXIS
     Route: 048
     Dates: start: 2002
  19. LACTOMIN [Concomitant]
     Indication: PROPHYLAXIS
     Route: 048
     Dates: start: 2002
  20. DIASTASE NATURAL AGENTS COMBINED DRUG [Concomitant]
     Indication: GASTRITIS PROPHYLAXIS
     Route: 048
     Dates: start: 2002
  21. CETRAXATE HYDROCHLORIDE [Concomitant]
     Indication: GASTRITIS PROPHYLAXIS
     Route: 048
     Dates: start: 2002
  22. CINNAMON BARK [Concomitant]
     Indication: GASTRITIS PROPHYLAXIS
     Route: 048
     Dates: start: 2002
  23. GENTIAN [Concomitant]
     Indication: GASTRITIS PROPHYLAXIS
     Route: 048
     Dates: start: 2002
  24. MENATETRENONE [Concomitant]
     Indication: OSTEOPOROSIS
     Route: 048
     Dates: start: 20101210
  25. TERIPARATIDE (GENETICAL RECOMBINATION) [Concomitant]
     Indication: OSTEOPOROSIS
     Route: 058
     Dates: start: 20121005

REACTIONS (1)
  - Subcutaneous abscess [Recovered/Resolved]
